FAERS Safety Report 5364352-0 (Version None)
Quarter: 2007Q2

REPORT INFORMATION
  Report Type: 
  Country: None (occurrence: None)
  Receive Date: 20070618
  Receipt Date: 20070605
  Transmission Date: 20071010
  Serious: Yes (Hospitalization)
  Sender: FDA-Public Use
  Company Number: 2007AL002268

PATIENT
  Age: 50 Year
  Sex: Male

DRUGS (9)
  1. CARBAMAZEPINE [Suspect]
     Dosage: 400 MG; TID; PO
     Route: 048
  2. TENOFOVIR [Concomitant]
  3. LAMIVUDINE [Concomitant]
  4. LOPINAVIR [Concomitant]
  5. CITALOPRAM HYDROBROMIDE [Concomitant]
  6. DAPSONE [Concomitant]
  7. FLUCONAZOLE [Concomitant]
  8. NELFINAVIR [Concomitant]
  9. RITONAVIR [Concomitant]

REACTIONS (34)
  - BALANCE DISORDER [None]
  - BIOPSY SKIN ABNORMAL [None]
  - BLOOD FOLATE INCREASED [None]
  - BLOOD PRESSURE DECREASED [None]
  - BONE MARROW TOXICITY [None]
  - CYTOMEGALOVIRUS ANTIBODY POSITIVE [None]
  - DERMATITIS [None]
  - DRUG LEVEL INCREASED [None]
  - DRUG TOXICITY [None]
  - DYSPHAGIA [None]
  - EPIDERMAL NECROSIS [None]
  - FATIGUE [None]
  - GAMMA-GLUTAMYLTRANSFERASE INCREASED [None]
  - HAEMOGLOBIN DECREASED [None]
  - HEART RATE DECREASED [None]
  - HYPERKERATOSIS [None]
  - HYPOREFLEXIA [None]
  - IMMUNE RECONSTITUTION SYNDROME [None]
  - LYMPHOCYTE COUNT DECREASED [None]
  - MEAN CELL VOLUME INCREASED [None]
  - NEUTROPHIL COUNT DECREASED [None]
  - ORAL CANDIDIASIS [None]
  - PALLOR [None]
  - PARAESTHESIA [None]
  - PLATELET COUNT DECREASED [None]
  - PURPURA [None]
  - RASH [None]
  - RASH ERYTHEMATOUS [None]
  - RASH PAPULAR [None]
  - RASH PRURITIC [None]
  - RETICULOCYTE COUNT INCREASED [None]
  - SOMNOLENCE [None]
  - TREATMENT NONCOMPLIANCE [None]
  - WHITE BLOOD CELL COUNT DECREASED [None]
